FAERS Safety Report 5002468-9 (Version None)
Quarter: 2006Q2

REPORT INFORMATION
  Report Type: 
  Country: None (occurrence: None)
  Receive Date: 20060515
  Receipt Date: 20060509
  Transmission Date: 20061013
  Serious: Yes (Hospitalization)
  Sender: FDA-Public Use
  Company Number: JP-MERCK-0605USA01937

PATIENT
  Age: 70 Year
  Sex: Female

DRUGS (4)
  1. DECADRON PHOSPHATE [Suspect]
     Indication: BREAST CANCER
     Route: 042
  2. DECADRON [Suspect]
     Indication: BREAST CANCER
     Route: 048
  3. ADRIACIN [Concomitant]
     Indication: BREAST CANCER
     Route: 042
  4. ENDOXAN [Concomitant]
     Indication: BREAST CANCER
     Route: 065

REACTIONS (1)
  - HEPATITIS [None]
